FAERS Safety Report 7690418-6 (Version None)
Quarter: 2011Q3

REPORT INFORMATION
  Report Type: 
  Country: None (occurrence: None)
  Receive Date: 20110812
  Receipt Date: 20110728
  Transmission Date: 20111222
  Serious: Yes (Disabling, Other)
  Sender: FDA-Public Use
  Company Number: 2011MA010817

PATIENT
  Age: 71 Year
  Sex: Male

DRUGS (9)
  1. TRAMADOL HYDROCHLORIDE [Suspect]
     Indication: PAIN
     Dosage: 100 MG; QD; PO
     Route: 048
     Dates: start: 20110707, end: 20110710
  2. RAMIPRIL [Concomitant]
  3. FUROSEMIDE [Concomitant]
  4. BISOPROLOL FUMARATE [Concomitant]
  5. LOSARTAN [Concomitant]
  6. SOLPADOL [Concomitant]
  7. ACEYTLSALICYLIC ACID [Concomitant]
  8. GABAPENTIN [Concomitant]
  9. SIMVASTATIN [Concomitant]

REACTIONS (6)
  - FEAR [None]
  - RASH GENERALISED [None]
  - MALAISE [None]
  - MOUTH ULCERATION [None]
  - SKIN LESION [None]
  - EMOTIONAL DISTRESS [None]
